FAERS Safety Report 9832022 (Version 2)
Quarter: 2015Q4

REPORT INFORMATION
  Report Type: Report from Study
  Country: FR (occurrence: FR)
  Receive Date: 20140121
  Receipt Date: 20151023
  Transmission Date: 20160305
  Serious: Yes (Life-Threatening, Hospitalization)
  Sender: FDA-Public Use
  Company Number: FR-ROCHE-1334789

PATIENT
  Age: 80 Year
  Sex: Female
  Weight: 46 kg

DRUGS (4)
  1. BACTRIM [Concomitant]
     Active Substance: SULFAMETHOXAZOLE\TRIMETHOPRIM
     Dosage: 1/2 DF
     Route: 048
  2. CORTANCYL [Suspect]
     Active Substance: PREDNISONE
     Indication: PRODUCT USED FOR UNKNOWN INDICATION
     Route: 048
  3. RITUXIMAB [Suspect]
     Active Substance: RITUXIMAB
     Indication: ANTI-NEUTROPHIL CYTOPLASMIC ANTIBODY POSITIVE VASCULITIS
     Route: 041
     Dates: start: 20130808, end: 20130808
  4. PREVISCAN (FRANCE) [Suspect]
     Active Substance: FLUINDIONE
     Indication: PRODUCT USED FOR UNKNOWN INDICATION
     Route: 048

REACTIONS (4)
  - Shock [Unknown]
  - Gastric perforation [Recovered/Resolved]
  - Haematemesis [Recovered/Resolved]
  - Hiatus hernia [Unknown]

NARRATIVE: CASE EVENT DATE: 20130813
